FAERS Safety Report 6209803-4 (Version None)
Quarter: 2009Q2

REPORT INFORMATION
  Report Type: 
  Country: None (occurrence: None)
  Receive Date: 20090601
  Receipt Date: 20090521
  Transmission Date: 20091009
  Serious: Yes (Other)
  Sender: FDA-Public Use
  Company Number: PHHY2008MX22682

PATIENT
  Sex: Male

DRUGS (6)
  1. DIOVAN [Suspect]
     Indication: HYPERTENSION
     Dosage: 160 MG, QD
     Route: 048
     Dates: start: 20050622
  2. MODURET [Concomitant]
     Indication: HYPERTENSION
  3. OMEPRAZOLE [Concomitant]
  4. NORVASC [Concomitant]
     Indication: HYPERTENSION
  5. METOPROLOL SUCCINATE [Concomitant]
     Indication: HYPERTENSION
  6. LOVAZA [Concomitant]
     Indication: ARTERIAL DISORDER

REACTIONS (8)
  - ANAEMIA [None]
  - APHONIA [None]
  - BACK PAIN [None]
  - BENIGN PROSTATIC HYPERPLASIA [None]
  - DEAFNESS [None]
  - PERIPHERAL ARTERY ANEURYSM [None]
  - RENAL ANEURYSM [None]
  - SCIATICA [None]
